FAERS Safety Report 4496096-1 (Version None)
Quarter: 2004Q4

REPORT INFORMATION
  Report Type: 
  Country: None (occurrence: None)
  Receive Date: 20041108
  Receipt Date: 20041018
  Transmission Date: 20050328
  Serious: Yes (Hospitalization, Disabling)
  Sender: FDA-Public Use
  Company Number: US-MERCK-0410USA02668

PATIENT
  Age: 72 Year
  Sex: Male

DRUGS (1)
  1. VIOXX [Suspect]
     Indication: DENTAL DISCOMFORT
     Route: 048
     Dates: start: 20040401, end: 20040401

REACTIONS (3)
  - CEREBROVASCULAR ACCIDENT [None]
  - DISORIENTATION [None]
  - ROAD TRAFFIC ACCIDENT [None]
